FAERS Safety Report 13522571 (Version 3)
Quarter: 2017Q4

REPORT INFORMATION
  Report Type: Report from Study
  Country: US (occurrence: US)
  Receive Date: 20170508
  Receipt Date: 20171211
  Transmission Date: 20180320
  Serious: Yes (Other)
  Sender: FDA-Public Use
  Company Number: ALCN2017US003097

PATIENT
  Age: 71 Year
  Sex: Female

DRUGS (2)
  1. SYSTANE (HYPROMELLOSE 2910 (4000 MPA.S)) [Suspect]
     Active Substance: HYPROMELLOSE 2910 (4000 MPA.S)
     Indication: PRODUCT USED FOR UNKNOWN INDICATION
     Route: 065
  2. SYSTANE ULTRA [Suspect]
     Active Substance: POLYETHYLENE GLYCOL 400\PROPYLENE GLYCOL
     Indication: PRODUCT USED FOR UNKNOWN INDICATION
     Route: 065

REACTIONS (9)
  - Drug ineffective [Unknown]
  - Macular fibrosis [Unknown]
  - Eye pain [Unknown]
  - Blindness unilateral [Unknown]
  - Age-related macular degeneration [Unknown]
  - Product quality issue [Unknown]
  - Cerebrovascular accident [Unknown]
  - Corneal dystrophy [Unknown]
  - Dry eye [Unknown]

NARRATIVE: CASE EVENT DATE: 2015
